FAERS Safety Report 10007427 (Version 1)
Quarter: 2014Q1

REPORT INFORMATION
  Report Type: Spontaneous
  Country: IT (occurrence: IT)
  Receive Date: 20140313
  Receipt Date: 20140313
  Transmission Date: 20141002
  Serious: Yes (Other)
  Sender: FDA-Public Use
  Company Number: IT-GLAXOSMITHKLINE-B0976449A

PATIENT
  Age: 41 Year
  Sex: Female

DRUGS (2)
  1. TYVERB [Suspect]
     Indication: INVASIVE DUCTAL BREAST CARCINOMA
     Route: 048
     Dates: start: 20131017, end: 20140212
  2. HERCEPTIN [Suspect]
     Indication: INVASIVE DUCTAL BREAST CARCINOMA
     Route: 042
     Dates: start: 20131017, end: 20140212

REACTIONS (2)
  - Neurotoxicity [Not Recovered/Not Resolved]
  - Visual acuity reduced [Not Recovered/Not Resolved]
